FAERS Safety Report 17340552 (Version 3)
Quarter: 2021Q2

REPORT INFORMATION
  Report Type: Report from Study
  Country: IN (occurrence: IN)
  Receive Date: 20200129
  Receipt Date: 20210422
  Transmission Date: 20210716
  Serious: Yes (Death)
  Sender: FDA-Public Use
  Company Number: IN-PFIZER INC-2020031049

PATIENT

DRUGS (3)
  1. CYCLOPHOSPHAMIDE. [Suspect]
     Active Substance: CYCLOPHOSPHAMIDE
     Indication: B-CELL LYMPHOMA
     Dosage: UNK, EVERY 3 WEEKS, EVERY 21 DAYS FOR SIX CYCLES
  2. PREDNISONE. [Suspect]
     Active Substance: PREDNISONE
     Indication: B-CELL LYMPHOMA
     Dosage: UNK, EVERY 3 WEEKS, EVERY 21 DAYS FOR SIX CYCLES
  3. VINCRISTINE [Suspect]
     Active Substance: VINCRISTINE
     Indication: B-CELL LYMPHOMA
     Dosage: UNK, EVERY 3 WEEKS, EVERY 21 DAYS FOR SIX CYCLES

REACTIONS (1)
  - Neutropenic sepsis [Fatal]
